FAERS Safety Report 6156731-9 (Version None)
Quarter: 2009Q2

REPORT INFORMATION
  Report Type: 
  Country: None (occurrence: None)
  Receive Date: 20090413
  Receipt Date: 20090413
  Transmission Date: 20091009
  Serious: No
  Sender: FDA-Public Use
  Company Number: None

PATIENT
  Age: 52 Year
  Sex: Male
  Weight: 127.0072 kg

DRUGS (1)
  1. ALPRAZOLAM [Suspect]
     Indication: PANIC ATTACK
     Dosage: ONE AS NEEDED PO, ONLY HAS TAKEN 6 SO FAR
     Route: 048
     Dates: start: 20090402, end: 20090412

REACTIONS (3)
  - DRUG HYPERSENSITIVITY [None]
  - PRODUCT QUALITY ISSUE [None]
  - URTICARIA [None]
